FAERS Safety Report 12689627 (Version 1)
Quarter: 2016Q3

REPORT INFORMATION
  Report Type: Spontaneous
  Country: US (occurrence: US)
  Receive Date: 20160826
  Receipt Date: 20160826
  Transmission Date: 20161109
  Serious: Yes (Death)
  Sender: FDA-Public Use
  Company Number: US-GLENMARK PHARMACEUTICALS EUROPE LIMITED-2016GMK024077

PATIENT
  Age: 60 Year
  Sex: Male

DRUGS (1)
  1. METFORMIN HYDROCHLORIDE. [Suspect]
     Active Substance: METFORMIN HYDROCHLORIDE
     Indication: PRODUCT USED FOR UNKNOWN INDICATION
     Dosage: UNK
     Route: 065

REACTIONS (9)
  - Poisoning [Fatal]
  - Acute kidney injury [Fatal]
  - Hyperdynamic left ventricle [Fatal]
  - Blood lactic acid increased [Fatal]
  - Acidosis [Fatal]
  - Unresponsive to stimuli [Fatal]
  - Oliguria [Fatal]
  - Shock [Fatal]
  - Hypotension [Fatal]
